FAERS Safety Report 7811385-8 (Version None)
Quarter: 2011Q4

REPORT INFORMATION
  Report Type: 
  Country: None (occurrence: None)
  Receive Date: 20111013
  Receipt Date: 20111007
  Transmission Date: 20120403
  Serious: Yes (Other)
  Sender: FDA-Public Use
  Company Number: JP-PFIZER INC-2011231431

PATIENT
  Age: 86 Year
  Sex: Male

DRUGS (7)
  1. SULFAMETHOXAZOLE [Concomitant]
     Indication: PNEUMONIA
     Dosage: 4 DF, UNK
     Route: 048
     Dates: start: 20110921, end: 20110928
  2. CLINDAMYCIN HCL [Suspect]
     Indication: PNEUMONIA
     Dosage: 1800 MG, UNK
     Route: 042
     Dates: start: 20110921, end: 20110928
  3. BIO THREE [Concomitant]
     Dosage: 6 DF, UNK
     Route: 048
     Dates: start: 20110916
  4. PHENYTOIN SODIUM CAP [Concomitant]
     Dosage: 3 G, UNK
     Route: 048
     Dates: start: 20110916
  5. CONIEL [Concomitant]
     Dosage: 1 DF, UNK
     Route: 048
     Dates: start: 20110916
  6. TEGRETOL [Concomitant]
     Dosage: 1 DF, UNK
     Route: 048
     Dates: start: 20110916
  7. CEFOPERAZONE SODIUM [Suspect]
     Indication: PNEUMONIA
     Dosage: 3 G, UNK
     Route: 042
     Dates: start: 20110921, end: 20110928

REACTIONS (1)
  - INTERNATIONAL NORMALISED RATIO INCREASED [None]
